FAERS Safety Report 7937855-X (Version None)
Quarter: 2011Q4

REPORT INFORMATION
  Report Type: 
  Country: None (occurrence: None)
  Receive Date: 20111123
  Receipt Date: 20111117
  Transmission Date: 20120403
  Serious: Yes (Other)
  Sender: FDA-Public Use
  Company Number: US-AMGEN-KDC415047

PATIENT
  Age: 59 Year
  Sex: Female

DRUGS (9)
  1. LEXAPRO [Concomitant]
  2. CALCIUM [Concomitant]
     Dosage: UNK UNK, UNK
     Route: 048
  3. AUGMENTIN [Concomitant]
  4. ABRAXANE [Concomitant]
  5. PERCOCET [Concomitant]
  6. XANAX [Concomitant]
  7. PROTONIX [Concomitant]
  8. DENOSUMAB [Suspect]
     Indication: METASTASES TO BONE
     Dosage: UNK
     Route: 058
     Dates: start: 20070223
  9. KLONOPIN [Concomitant]

REACTIONS (2)
  - OSTEONECROSIS OF JAW [None]
  - BLOOD CALCIUM INCREASED [None]
